FAERS Safety Report 20520899 (Version 2)
Quarter: 2022Q1

REPORT INFORMATION
  Report Type: Spontaneous
  Country: EG (occurrence: EG)
  Receive Date: 20220225
  Receipt Date: 20220303
  Transmission Date: 20220424
  Serious: Yes (Death, Hospitalization, Other)
  Sender: FDA-Public Use
  Company Number: EG-009507513-2202EGY006697

PATIENT
  Sex: Male

DRUGS (1)
  1. KEYTRUDA [Suspect]
     Active Substance: PEMBROLIZUMAB
     Indication: Thyroid neoplasm
     Dosage: 100 MILLIGRAM, Q3W
     Route: 042
     Dates: start: 20220201, end: 20220201

REACTIONS (4)
  - Coma [Fatal]
  - Amnesia [Fatal]
  - Decreased appetite [Fatal]
  - Intentional underdose [Fatal]

NARRATIVE: CASE EVENT DATE: 20220201
